FAERS Safety Report 8836038 (Version 2)
Quarter: 2012Q4

REPORT INFORMATION
  Report Type: 
  Country: US (occurrence: US)
  Receive Date: 20121011
  Receipt Date: 20121119
  Transmission Date: 20130627
  Serious: Yes (Hospitalization, Other)
  Sender: FDA-Public Use
  Company Number: US-MERCK-1210USA002909

PATIENT
  Sex: Male

DRUGS (6)
  1. PEG-INTRON [Suspect]
     Indication: HEPATITIS C
     Dosage: UNK
     Dates: start: 20120907
  2. REBETOL [Suspect]
     Indication: HEPATITIS C
     Dosage: UNK
     Dates: start: 20120908
  3. TELAPREVIR [Concomitant]
     Indication: HEPATITIS C
     Dosage: UNK
     Dates: start: 20120908
  4. SERTRALINE HYDROCHLORIDE [Concomitant]
     Indication: PROPHYLAXIS
  5. TRAZODONE HYDROCHLORIDE [Concomitant]
     Indication: PROPHYLAXIS
  6. GATORADE [Concomitant]
     Dosage: 3 bottles a day

REACTIONS (3)
  - Asthma [Unknown]
  - Cough [Unknown]
  - Glycosylated haemoglobin increased [Unknown]
